FAERS Safety Report 11888113 (Version 2)
Quarter: 2016Q1

REPORT INFORMATION
  Report Type: Spontaneous
  Country: GB (occurrence: GB)
  Receive Date: 20160105
  Receipt Date: 20160123
  Transmission Date: 20160526
  Serious: No
  Sender: FDA-Public Use
  Company Number: GB-AUROBINDO-AUR-APL-2015-12068

PATIENT
  Age: 36 Year
  Sex: Male

DRUGS (4)
  1. PANTOPRAZOLE [Concomitant]
     Active Substance: PANTOPRAZOLE SODIUM
     Indication: GASTRIC ULCER
     Dosage: 40 MG, UNK
     Route: 065
  2. COCODAMOL [Concomitant]
     Active Substance: ACETAMINOPHEN\CODEINE PHOSPHATE
     Indication: PAIN
     Dosage: 30/500 MG
     Route: 065
  3. SERTRALINE 50MG [Suspect]
     Active Substance: SERTRALINE HYDROCHLORIDE
     Dosage: 50 MG, TWO TIMES A DAY
     Route: 048
     Dates: start: 20150928, end: 20151005
  4. SERTRALINE 50MG [Suspect]
     Active Substance: SERTRALINE HYDROCHLORIDE
     Indication: FEELING ABNORMAL
     Dosage: 50 MG, ONCE A DAY
     Route: 048
     Dates: start: 20150914, end: 20150928

REACTIONS (4)
  - Abdominal discomfort [Unknown]
  - Tremor [Not Recovered/Not Resolved]
  - Feeling abnormal [Unknown]
  - Drug ineffective [Unknown]

NARRATIVE: CASE EVENT DATE: 20150928
